FAERS Safety Report 9630711 (Version 1)
Quarter: 2013Q4

REPORT INFORMATION
  Report Type: Spontaneous
  Country: US (occurrence: None)
  Receive Date: 20131016
  Receipt Date: 20131016
  Transmission Date: 20140711
  Serious: No
  Sender: FDA-Public Use
  Company Number: None

PATIENT
  Age: 77 Year
  Sex: Male
  Weight: 88.5 kg

DRUGS (2)
  1. TIGECYCLINE [Suspect]
     Indication: ACINETOBACTER BACTERAEMIA
     Route: 042
     Dates: start: 20131006, end: 20131015
  2. TIGECYCLINE [Suspect]
     Route: 042
     Dates: start: 20131006, end: 20131015

REACTIONS (1)
  - Blood fibrinogen decreased [None]
